FAERS Safety Report 8239482-6 (Version None)
Quarter: 2012Q1

REPORT INFORMATION
  Report Type: 
  Country: None (occurrence: None)
  Receive Date: 20120328
  Receipt Date: 20120326
  Transmission Date: 20120608
  Serious: Yes (Other)
  Sender: FDA-Public Use
  Company Number: US-PFIZER INC-2012078199

PATIENT
  Sex: Female
  Weight: 31.746 kg

DRUGS (7)
  1. CHANTIX [Suspect]
     Indication: SMOKING CESSATION THERAPY
     Dosage: 0.5 MG, DAILY
     Route: 048
     Dates: start: 20120324, end: 20120325
  2. GABAPENTIN [Concomitant]
     Indication: MUSCLE RELAXANT THERAPY
  3. SIMVASTATIN [Concomitant]
     Indication: BLOOD CHOLESTEROL ABNORMAL
     Dosage: 10 MG, DAILY
  4. LEVOTHYROXINE [Concomitant]
     Indication: THYROID DISORDER
     Dosage: 100 UG, DAILY
  5. CELEBREX [Concomitant]
     Indication: ARTHRITIS
     Dosage: 200 MG, DAILY
  6. OXYCONTIN [Concomitant]
     Indication: BACK PAIN
     Dosage: 20 MG, 2X/DAY
  7. GABAPENTIN [Concomitant]
     Indication: MYALGIA
     Dosage: 800 MG, 2X/DAY

REACTIONS (1)
  - HALLUCINATION [None]
